FAERS Safety Report 23067123 (Version 1)
Quarter: 2023Q4

REPORT INFORMATION
  Report Type: Spontaneous
  Country: FR (occurrence: FR)
  Receive Date: 20231016
  Receipt Date: 20231016
  Transmission Date: 20240110
  Serious: Yes (Other)
  Sender: FDA-Public Use
  Company Number: FR-VIIV HEALTHCARE LIMITED-FR2023EME139255

PATIENT

DRUGS (2)
  1. VOCABRIA [Suspect]
     Active Substance: CABOTEGRAVIR SODIUM
     Indication: Product used for unknown indication
     Dosage: UNK
  2. RILPIVIRINE [Suspect]
     Active Substance: RILPIVIRINE
     Indication: Product used for unknown indication
     Dosage: UNK

REACTIONS (8)
  - Epilepsy [Unknown]
  - Loss of consciousness [Unknown]
  - Syncope [Unknown]
  - Trismus [Unknown]
  - Pallor [Unknown]
  - Hyperhidrosis [Unknown]
  - Muscle contractions involuntary [Unknown]
  - Urinary incontinence [Unknown]
